FAERS Safety Report 6258880-3 (Version None)
Quarter: 2009Q3

REPORT INFORMATION
  Report Type: 
  Country: None (occurrence: None)
  Receive Date: 20090707
  Receipt Date: 20090702
  Transmission Date: 20100115
  Serious: Yes (Death)
  Sender: FDA-Public Use
  Company Number: JP-BRISTOL-MYERS SQUIBB COMPANY-14690184

PATIENT
  Age: 67 Year
  Sex: Male

DRUGS (2)
  1. TAXOL [Suspect]
     Indication: NON-SMALL CELL LUNG CANCER
     Dosage: TAKEN BETWEEN APR2007-NOV2008
     Route: 041
     Dates: start: 20081101, end: 20081101
  2. PARAPLATIN [Suspect]
     Indication: NON-SMALL CELL LUNG CANCER
     Dosage: TAKEN BETWEEN APR2007-NOV2008
     Route: 041
     Dates: start: 20081101, end: 20081101

REACTIONS (1)
  - INTERSTITIAL LUNG DISEASE [None]
